FAERS Safety Report 9727052 (Version 3)
Quarter: 2014Q1

REPORT INFORMATION
  Report Type: Spontaneous
  Country: US (occurrence: US)
  Receive Date: 20131203
  Receipt Date: 20140110
  Transmission Date: 20141002
  Serious: Yes (Disabling)
  Sender: FDA-Public Use
  Company Number: US-PFIZER INC-2013343076

PATIENT
  Age: 58 Year
  Sex: Female
  Weight: 72.56 kg

DRUGS (13)
  1. EFFEXOR XR [Suspect]
     Indication: NERVOUSNESS
     Dosage: 150 MG, 1X/DAY
     Route: 048
  2. EFFEXOR XR [Suspect]
     Indication: DEPRESSION
  3. METOPROLOL TARTRATE [Suspect]
     Dosage: UNK
  4. OMEPRAZOLE [Suspect]
     Indication: GASTROINTESTINAL DISORDER
     Dosage: 40 MG, 2X/DAY
  5. SPIRIVA [Suspect]
     Dosage: UNK
  6. MULTAQ [Suspect]
     Dosage: UNK
  7. CLONAZEPAM [Suspect]
     Dosage: UNK
  8. PROAIR HFA [Suspect]
     Dosage: UNK
  9. XARELTO [Suspect]
     Dosage: UNK
  10. HCTZ [Suspect]
     Dosage: 25 MG, UNK
  11. ZOCOR [Suspect]
     Dosage: UNK
  12. WELLBUTRIN XL [Suspect]
     Dosage: UNK
  13. ASPIRIN [Suspect]
     Dosage: UNK

REACTIONS (2)
  - Chronic obstructive pulmonary disease [Unknown]
  - Emphysema [Unknown]
